FAERS Safety Report 16964997 (Version 1)
Quarter: 2019Q4

REPORT INFORMATION
  Report Type: Report from Study
  Country: CA (occurrence: CA)
  Receive Date: 20191028
  Receipt Date: 20191028
  Transmission Date: 20200122
  Serious: Yes (Hospitalization, Other)
  Sender: FDA-Public Use
  Company Number: CA-GLAXOSMITHKLINE-2019-TSO02928-CA

PATIENT
  Age: 67 Year
  Sex: Male
  Weight: 99.6 kg

DRUGS (11)
  1. VITAMIN E                          /00110501/ [Concomitant]
     Active Substance: TOCOPHEROL
     Indication: NUTRITIONAL SUPPLEMENTATION
     Dosage: UNK
     Route: 065
     Dates: start: 201904
  2. GRAVOL [Concomitant]
     Active Substance: DIMENHYDRINATE
     Indication: INSOMNIA
     Dosage: UNK
     Route: 065
     Dates: start: 201809
  3. GOSERELIN [Concomitant]
     Active Substance: GOSERELIN
     Dosage: 11 MG, UNK
     Route: 065
     Dates: start: 20120419, end: 20121002
  4. CALCIUM W/COLECALCIFEROL [Concomitant]
     Active Substance: CALCIUM\CHOLECALCIFEROL
     Indication: NUTRITIONAL SUPPLEMENTATION
     Dosage: UNK
     Route: 065
     Dates: start: 201903
  5. VOLTAREN [Concomitant]
     Active Substance: DICLOFENAC SODIUM
     Indication: OSTEOARTHRITIS
     Dosage: UNK
     Route: 065
     Dates: start: 2004
  6. GOSERELIN [Concomitant]
     Active Substance: GOSERELIN
     Indication: PROSTATE CANCER
     Dosage: UNK MG, UNK
     Route: 065
     Dates: start: 20160428
  7. JNJ-63723283 [Suspect]
     Active Substance: CETRELIMAB
     Indication: PROSTATE CANCER METASTATIC
     Dosage: MEDICATION KIT NUMBER 180757, 180758
     Route: 042
     Dates: start: 20190719, end: 20190719
  8. GOSERELIN [Concomitant]
     Active Substance: GOSERELIN
     Dosage: 11 MG, UNK
     Route: 065
     Dates: start: 20140713, end: 20141007
  9. GOSERELIN [Concomitant]
     Active Substance: GOSERELIN
     Dosage: 11 MG, UNK
     Route: 065
     Dates: start: 20090206, end: 20090429
  10. PREDNISONE. [Concomitant]
     Active Substance: PREDNISONE
     Indication: PRODUCT USED FOR UNKNOWN INDICATION
     Route: 065
  11. NIRAPARIB [Suspect]
     Active Substance: NIRAPARIB
     Indication: PROSTATE CANCER METASTATIC
     Dosage: MEDICATION KIT NUMBER 100190
     Route: 048
     Dates: start: 20190719, end: 20190812

REACTIONS (1)
  - Embolism [Recovered/Resolved]

NARRATIVE: CASE EVENT DATE: 20190810
